FAERS Safety Report 26057721 (Version 1)
Quarter: 2025Q4

REPORT INFORMATION
  Report Type: Report from Study
  Country: IN (occurrence: IN)
  Receive Date: 20251118
  Receipt Date: 20251118
  Transmission Date: 20260117
  Serious: Yes (Other)
  Sender: TAKEDA
  Company Number: IN-TAKEDA-2025TUS100544

PATIENT
  Age: 79 Year
  Sex: Female

DRUGS (1)
  1. BRIGATINIB [Suspect]
     Active Substance: BRIGATINIB
     Indication: Non-small cell lung cancer
     Dosage: 90 MILLIGRAM

REACTIONS (4)
  - Blood glucose fluctuation [Unknown]
  - Blood pressure fluctuation [Unknown]
  - Hyperchlorhydria [Unknown]
  - Vomiting [Unknown]
